FAERS Safety Report 9984811 (Version 1)
Quarter: 2014Q1

REPORT INFORMATION
  Report Type: Spontaneous
  Country: US (occurrence: US)
  Receive Date: 20140307
  Receipt Date: 20140307
  Transmission Date: 20141002
  Serious: Yes (Death, Other)
  Sender: FDA-Public Use
  Company Number: PHHY2014US024933

PATIENT
  Age: 68 Year
  Sex: Female

DRUGS (5)
  1. CARBOPLATIN [Suspect]
     Indication: SMALL CELL LUNG CANCER
  2. ETOPOSIDE [Suspect]
     Indication: SMALL CELL LUNG CANCER
  3. TEMOZOLOMIDE [Suspect]
     Indication: CHEMOTHERAPY
     Dosage: 150 MG/M2, UNK
     Route: 048
  4. ETOPOSIDE [Suspect]
     Indication: CHEMOTHERAPY
     Dosage: 50 MG/M2, UNK
     Route: 048
  5. OBATOCLAX [Concomitant]
     Indication: SMALL CELL LUNG CANCER

REACTIONS (7)
  - Death [Fatal]
  - Metastases to spine [Unknown]
  - Metastases to central nervous system [Unknown]
  - Bone marrow failure [Unknown]
  - Neutropenia [Unknown]
  - Lymphopenia [Unknown]
  - Leukopenia [Unknown]
